FAERS Safety Report 17269333 (Version 1)
Quarter: 2020Q1

REPORT INFORMATION
  Report Type: Spontaneous
  Country: BG (occurrence: BG)
  Receive Date: 20200114
  Receipt Date: 20200114
  Transmission Date: 20200409
  Serious: Yes (Hospitalization)
  Sender: FDA-Public Use
  Company Number: BG-MYLANLABS-2020M1003380

PATIENT
  Age: 51 Year
  Sex: Male

DRUGS (8)
  1. TICAGRELOR. [Concomitant]
     Active Substance: TICAGRELOR
  2. RAMIPRIL. [Concomitant]
     Active Substance: RAMIPRIL
  3. PANTOPRAZOLE [Concomitant]
     Active Substance: PANTOPRAZOLE
     Dosage: 40 MG
  4. ASPIRIN                            /00002701/ [Suspect]
     Active Substance: ASPIRIN
     Dosage: 100 MG
  5. ROSUVASTATIN. [Concomitant]
     Active Substance: ROSUVASTATIN
     Dosage: 20 MG
  6. ILOMEDIN [Suspect]
     Active Substance: ILOPROST TROMETHAMINE
     Dosage: 1 DF FOR 4 DAYS
  7. PRASUGREL. [Suspect]
     Active Substance: PRASUGREL
     Indication: PRODUCT USED FOR UNKNOWN INDICATION
     Dosage: 10 MG
  8. LOSTRAZIN [Concomitant]
     Dosage: 2 DF 100 MG

REACTIONS (1)
  - Intermittent claudication [Unknown]

NARRATIVE: CASE EVENT DATE: 201910
